FAERS Safety Report 5167746-1 (Version None)
Quarter: 2006Q4

REPORT INFORMATION
  Report Type: 
  Country: None (occurrence: None)
  Receive Date: 20061130
  Receipt Date: 20061130
  Transmission Date: 20070319
  Serious: Yes (Life-Threatening, Hospitalization)
  Sender: FDA-Public Use
  Company Number: None

PATIENT
  Age: 47 Year
  Sex: Male
  Weight: 86.6 kg

DRUGS (4)
  1. LISINOPRIL AND HYDROCHLOROTHIAZIDE [Suspect]
     Dosage: SEE IMAGE
     Dates: start: 20060501, end: 20061001
  2. LISINOPRIL AND HYDROCHLOROTHIAZIDE [Suspect]
     Dosage: SEE IMAGE
     Dates: start: 20060601, end: 20061001
  3. METOPROLOL TARTRATE [Concomitant]
  4. LOVASTATIN [Concomitant]

REACTIONS (1)
  - PANCREATITIS [None]
